FAERS Safety Report 14258400 (Version 2)
Quarter: 2017Q4

REPORT INFORMATION
  Report Type: Spontaneous
  Country: US (occurrence: US)
  Receive Date: 20171207
  Receipt Date: 20171215
  Transmission Date: 20180321
  Serious: No
  Sender: FDA-Public Use
  Company Number: US-PFIZER INC-2017514235

PATIENT
  Age: 50 Year
  Sex: Male
  Weight: 92.53 kg

DRUGS (12)
  1. ATORVASTATIN [Concomitant]
     Active Substance: ATORVASTATIN
     Dosage: 10 MG, DAILY
     Route: 048
  2. IRBESARTAN. [Concomitant]
     Active Substance: IRBESARTAN
     Dosage: UNK
  3. VICTOZA [Concomitant]
     Active Substance: LIRAGLUTIDE
     Indication: TYPE 2 DIABETES MELLITUS
     Dosage: 1.8 MG, DAILY
     Dates: start: 2017
  4. OXYCODONE [Concomitant]
     Active Substance: OXYCODONE
     Indication: PAIN
     Dosage: 30 MG, 3X/DAY
     Route: 048
  5. IRBESARTAN HCTZ [Concomitant]
     Active Substance: HYDROCHLOROTHIAZIDE\IRBESARTAN
     Dosage: 1 DF, DAILY [(IRBESARTAN: 300MG)/(HCTZ: 12.5MG)]
     Route: 048
  6. GLIPIZIDE. [Concomitant]
     Active Substance: GLIPIZIDE
     Dosage: 10 MG, 2X/DAY WITH MEAL
     Route: 048
  7. OXYCODONE [Concomitant]
     Active Substance: OXYCODONE
     Dosage: UNK (1 CAPSULE OR A PILL EVERY 3 OR 4 HOURS BASED ON MY PAIN LEVEL)
  8. LANTUS [Concomitant]
     Active Substance: INSULIN GLARGINE
     Dosage: 30 IU, 1X/DAY
  9. BELSOMRA [Concomitant]
     Active Substance: SUVOREXANT
     Indication: RESTLESS LEGS SYNDROME
     Dosage: 20 MG, DAILY
  10. CYMBALTA [Concomitant]
     Active Substance: DULOXETINE HYDROCHLORIDE
     Indication: DEPRESSION
     Dosage: 120 MG, DAILY (2 CAPSULES A DAY)
  11. METFORMIN [Concomitant]
     Active Substance: METFORMIN HYDROCHLORIDE
     Dosage: 1000 MG, 1X/DAY (DAILY WITH BREAKFAST)
     Route: 048
  12. EMBEDA [Suspect]
     Active Substance: MORPHINE SULFATE\NALTREXONE HYDROCHLORIDE
     Indication: SHOULDER ARTHROPLASTY
     Dosage: 1 DF, 1X/DAY (MORPHINE 20 MG / NALTREXONE HYDROCHLORIDE 0.8 MG)
     Route: 048
     Dates: start: 201709

REACTIONS (4)
  - Drug screen negative [Unknown]
  - Stress [Unknown]
  - Drug ineffective [Unknown]
  - Drug clearance decreased [Unknown]

NARRATIVE: CASE EVENT DATE: 20171113
